FAERS Safety Report 5655495-2 (Version None)
Quarter: 2008Q1

REPORT INFORMATION
  Report Type: 
  Country: None (occurrence: None)
  Receive Date: 20080307
  Receipt Date: 20080226
  Transmission Date: 20080703
  Serious: Yes (Death, Other)
  Sender: FDA-Public Use
  Company Number: US-ELI_LILLY_AND_COMPANY-US200802006041

PATIENT
  Age: 81 Year
  Sex: Male

DRUGS (1)
  1. HUMULIN N [Suspect]
     Dosage: UNK, UNK
     Dates: start: 19980101

REACTIONS (3)
  - CARDIAC DISORDER [None]
  - CORONARY ARTERIAL STENT INSERTION [None]
  - CORONARY ARTERY BYPASS [None]
